FAERS Safety Report 24959109 (Version 3)
Quarter: 2025Q2

REPORT INFORMATION
  Report Type: Report from Study
  Country: GB (occurrence: GB)
  Receive Date: 20250212
  Receipt Date: 20250520
  Transmission Date: 20250717
  Serious: Yes (Other)
  Sender: NOVARTIS
  Company Number: GB-002147023-NVSC2024GB169717

PATIENT
  Age: 33 Year
  Sex: Female

DRUGS (3)
  1. KESIMPTA [Suspect]
     Active Substance: OFATUMUMAB
     Indication: Relapsing-remitting multiple sclerosis
     Dosage: 20 MG, QW
     Route: 058
     Dates: start: 20240812
  2. KESIMPTA [Suspect]
     Active Substance: OFATUMUMAB
     Dosage: 20 MG, QW
     Route: 058
     Dates: start: 20240826
  3. KESIMPTA [Suspect]
     Active Substance: OFATUMUMAB
     Dosage: 20 MG, QMO
     Route: 058

REACTIONS (15)
  - Lower respiratory tract infection [Recovered/Resolved]
  - Breast cancer [Unknown]
  - Influenza like illness [Recovered/Resolved]
  - Dizziness [Recovered/Resolved]
  - Chills [Recovered/Resolved]
  - Feeling cold [Recovered/Resolved]
  - Body temperature increased [Recovered/Resolved]
  - Influenza like illness [Recovered/Resolved]
  - Dizziness [Recovered/Resolved]
  - Chills [Recovered/Resolved]
  - Pain in extremity [Recovered/Resolved]
  - Dizziness postural [Not Recovered/Not Resolved]
  - Upper respiratory tract infection [Recovering/Resolving]
  - Malaise [Recovering/Resolving]
  - Fatigue [Recovered/Resolved]

NARRATIVE: CASE EVENT DATE: 20240812
